FAERS Safety Report 5874251-3 (Version None)
Quarter: 2008Q3

REPORT INFORMATION
  Report Type: 
  Country: None (occurrence: None)
  Receive Date: 20080908
  Receipt Date: 20080826
  Transmission Date: 20090109
  Serious: Yes (Hospitalization)
  Sender: FDA-Public Use
  Company Number: JP-ELI_LILLY_AND_COMPANY-JP200808005631

PATIENT
  Age: 43 Year
  Sex: Male

DRUGS (1)
  1. GEMZAR [Suspect]
     Indication: BILE DUCT CANCER
     Dosage: 400 MG, OTHER
     Route: 042
     Dates: end: 20080701

REACTIONS (4)
  - HAEMOLYTIC URAEMIC SYNDROME [None]
  - HEPATIC FUNCTION ABNORMAL [None]
  - PERICARDIAL EFFUSION [None]
  - RENAL IMPAIRMENT [None]
